FAERS Safety Report 16823525 (Version 1)
Quarter: 2019Q3

REPORT INFORMATION
  Report Type: Spontaneous
  Country: US (occurrence: US)
  Receive Date: 20190918
  Receipt Date: 20190918
  Transmission Date: 20191005
  Serious: No
  Sender: FDA-Public Use
  Company Number: US-009507513-1909USA006601

PATIENT
  Age: 24 Year
  Sex: Female
  Weight: 62.13 kg

DRUGS (3)
  1. RETIN-A [Concomitant]
     Active Substance: TRETINOIN
  2. VITAMINS (UNSPECIFIED) [Concomitant]
     Active Substance: VITAMINS
  3. NEXPLANON [Suspect]
     Active Substance: ETONOGESTREL
     Indication: CONTRACEPTION
     Dosage: 1 IMPLANT EVERY 3 YEARS (LEFT ARM)
     Dates: start: 201906, end: 20190913

REACTIONS (3)
  - Poor quality sleep [Not Recovered/Not Resolved]
  - Menorrhagia [Not Recovered/Not Resolved]
  - Mood altered [Not Recovered/Not Resolved]

NARRATIVE: CASE EVENT DATE: 201906
